FAERS Safety Report 5965248-3 (Version None)
Quarter: 2008Q4

REPORT INFORMATION
  Report Type: 
  Country: None (occurrence: None)
  Receive Date: 20081125
  Receipt Date: 20081124
  Transmission Date: 20090506
  Serious: Yes (Hospitalization, Other)
  Sender: FDA-Public Use
  Company Number: PHHO2003US11895

PATIENT
  Sex: Male
  Weight: 114 kg

DRUGS (10)
  1. STI571/CGP57148B T35717+CAPS [Suspect]
     Indication: PROSTATE CANCER METASTATIC
     Dosage: 600 MG, QD
     Route: 048
     Dates: start: 20030903, end: 20030913
  2. STI571/CGP57148B T35717+CAPS [Suspect]
     Dosage: 400 MG, QD
     Route: 048
     Dates: start: 20030924
  3. TAXOTERE [Suspect]
  4. DIGITEK [Concomitant]
  5. TENORMIN [Concomitant]
  6. VITAMIN B-12 [Concomitant]
  7. PLAVIX [Concomitant]
  8. LASIX [Concomitant]
  9. POTASSIUM CHLORIDE [Concomitant]
  10. MULTIVITAMIN [Concomitant]

REACTIONS (15)
  - ABDOMINAL PAIN [None]
  - CHOLECYSTITIS [None]
  - DIARRHOEA [None]
  - DIVERTICULITIS [None]
  - FLUID RETENTION [None]
  - LEUKOPENIA [None]
  - NAUSEA [None]
  - NEPHROLITHIASIS [None]
  - NEUTROPENIA [None]
  - PANCREATITIS [None]
  - PLEURAL EFFUSION [None]
  - PYELONEPHRITIS [None]
  - PYREXIA [None]
  - RENAL CYST [None]
  - SINUS DISORDER [None]
